FAERS Safety Report 24426696 (Version 9)
Quarter: 2025Q1

REPORT INFORMATION
  Report Type: Spontaneous
  Country: US (occurrence: US)
  Receive Date: 20241011
  Receipt Date: 20250109
  Transmission Date: 20250408
  Serious: Yes (Hospitalization)
  Sender: ROCHE
  Company Number: US-ROCHE-3579539

PATIENT
  Sex: Female

DRUGS (3)
  1. XOLAIR [Suspect]
     Active Substance: OMALIZUMAB
     Indication: Idiopathic urticaria
     Dosage: VIAL
     Route: 058
     Dates: start: 202308
  2. EPINEPI-RINE AUTO-INJ [Concomitant]
  3. HAEGARDA [Concomitant]
     Active Substance: HUMAN C1-ESTERASE INHIBITOR

REACTIONS (6)
  - Urticaria [Recovered/Resolved]
  - Pyrexia [Unknown]
  - Infection [Unknown]
  - Swelling [Unknown]
  - Seizure [Unknown]
  - Off label use [Unknown]
